FAERS Safety Report 5609113-X (Version None)
Quarter: 2008Q1

REPORT INFORMATION
  Report Type: 
  Country: None (occurrence: None)
  Receive Date: 20080130
  Receipt Date: 20080130
  Transmission Date: 20080703
  Serious: Yes (Other)
  Sender: FDA-Public Use
  Company Number: None

PATIENT
  Age: 61 Year
  Sex: Female
  Weight: 78.9259 kg

DRUGS (2)
  1. METOPROLOL TARTRATE [Suspect]
     Indication: BLOOD PRESSURE
     Dosage: 1 T QD
     Dates: start: 20070901
  2. METOPROLOL TARTRATE [Suspect]
     Indication: PALPITATIONS
     Dosage: 1 T QD
     Dates: start: 20070901

REACTIONS (3)
  - CHEST PAIN [None]
  - LETHARGY [None]
  - PHARMACEUTICAL PRODUCT COMPLAINT [None]
